APPROVED DRUG PRODUCT: FLUOROURACIL
Active Ingredient: FLUOROURACIL
Strength: 1GM/20ML (50MG/ML)
Dosage Form/Route: INJECTABLE;INJECTION
Application: A203608 | Product #002 | TE Code: AP
Applicant: SAGENT PHARMACEUTICALS INC
Approved: May 11, 2017 | RLD: No | RS: No | Type: RX